FAERS Safety Report 21196135 (Version 2)
Quarter: 2022Q3

REPORT INFORMATION
  Report Type: Spontaneous
  Country: US (occurrence: US)
  Receive Date: 20220810
  Receipt Date: 20220902
  Transmission Date: 20221026
  Serious: Yes (Other)
  Sender: FDA-Public Use
  Company Number: US-PFIZER INC-202201046080

PATIENT
  Age: 69 Year
  Sex: Female

DRUGS (1)
  1. PAXLOVID [Suspect]
     Active Substance: NIRMATRELVIR\RITONAVIR
     Indication: COVID-19 treatment
     Dosage: [PF-07321332 150 MG]/[RITONAVIR 100 MG]; 2X/DAY
     Route: 048
     Dates: start: 20220527, end: 20220531

REACTIONS (5)
  - Deafness [Unknown]
  - COVID-19 [Recovered/Resolved]
  - Disease recurrence [Recovered/Resolved]
  - Hypoacusis [Not Recovered/Not Resolved]
  - Ear congestion [Not Recovered/Not Resolved]

NARRATIVE: CASE EVENT DATE: 20220601
